FAERS Safety Report 11990167 (Version 2)
Quarter: 2016Q1

REPORT INFORMATION
  Report Type: Spontaneous
  Country: BR (occurrence: BR)
  Receive Date: 20160202
  Receipt Date: 20160215
  Transmission Date: 20160526
  Serious: Yes (Other)
  Sender: FDA-Public Use
  Company Number: BR-ABBVIE-16P-020-1535334-00

PATIENT
  Sex: Female
  Weight: 56 kg

DRUGS (1)
  1. SYNTHROID [Suspect]
     Active Substance: LEVOTHYROXINE SODIUM
     Indication: HYPOTHYROIDISM
     Dosage: DAILY DOSE: 62.5 MCG; 50 MCG+HALF TABLET 25 MCG
     Route: 048
     Dates: start: 2004

REACTIONS (2)
  - Coagulopathy [Unknown]
  - Wrong technique in product usage process [Unknown]
